FAERS Safety Report 6847700-1 (Version None)
Quarter: 2010Q3

REPORT INFORMATION
  Report Type: 
  Country: None (occurrence: None)
  Receive Date: 20100716
  Receipt Date: 20091126
  Transmission Date: 20110219
  Serious: Yes (Hospitalization, Other)
  Sender: FDA-Public Use
  Company Number: FR-PFIZER INC-2009304102

PATIENT
  Age: 78 Year
  Sex: Female

DRUGS (3)
  1. CEFPODOXIME PROXETIL [Suspect]
     Dosage: 100 MG, 2X/DAY
     Route: 048
     Dates: start: 20091009, end: 20091011
  2. LODINE [Suspect]
     Indication: ARTHRALGIA
     Dosage: 100 MG, 2X/DAY
     Route: 048
     Dates: start: 20090921, end: 20090926
  3. DOLIPRANE [Suspect]
     Indication: OSTEOARTHRITIS
     Dosage: 500 MG, 2X/DAY
     Dates: start: 20090921, end: 20091012

REACTIONS (7)
  - BLOOD PRESSURE INCREASED [None]
  - BRONCHITIS [None]
  - ECCHYMOSIS [None]
  - GINGIVAL BLEEDING [None]
  - HAEMATOMA [None]
  - HAEMOPTYSIS [None]
  - THROMBOCYTOPENIA [None]
